FAERS Safety Report 13546601 (Version 1)
Quarter: 2020Q3

REPORT INFORMATION
  Report Type: Report from Study
  Country: KR (occurrence: KR)
  Receive Date: 20170515
  Receipt Date: 20170515
  Transmission Date: 20201104
  Serious: Yes (Death, Hospitalization)
  Sender: FDA-Public Use
  Company Number: KR-ASTRAZENECA-2016SE59822

PATIENT
  Age: 858 Month
  Sex: Female

DRUGS (35)
  1. TREMELIMUMAB. [Suspect]
     Active Substance: TREMELIMUMAB
     Indication: ADENOCARCINOMA
     Route: 042
     Dates: start: 20160126, end: 20160126
  2. DIABEX [Concomitant]
     Active Substance: METFORMIN HYDROCHLORIDE
     Indication: DIABETES MELLITUS
     Route: 048
     Dates: start: 20160322
  3. NEURONTIN [Concomitant]
     Active Substance: GABAPENTIN
     Indication: PROPHYLAXIS
     Route: 048
     Dates: start: 20160430
  4. SOLONDO [Concomitant]
     Active Substance: PREDNISOLONE
     Indication: DIARRHOEA
     Dosage: 15MG TWICE A DAY
     Route: 048
     Dates: start: 20160510, end: 20160519
  5. TREMELIMUMAB. [Suspect]
     Active Substance: TREMELIMUMAB
     Indication: ADENOCARCINOMA
     Route: 042
     Dates: start: 20160421, end: 20160421
  6. MEDI4736 [Suspect]
     Active Substance: DURVALUMAB
     Indication: ADENOCARCINOMA
     Route: 042
     Dates: start: 20160322, end: 20160322
  7. CYCLOPHOSPHAMIDE. [Suspect]
     Active Substance: CYCLOPHOSPHAMIDE
     Indication: MYOSITIS
     Dosage: 750 MG DAILY(ENDOXAN)
     Route: 042
     Dates: start: 20160622, end: 20160622
  8. TREMELIMUMAB. [Suspect]
     Active Substance: TREMELIMUMAB
     Indication: ADENOCARCINOMA
     Route: 042
     Dates: start: 20160223, end: 20160223
  9. MYPOL [Concomitant]
     Indication: PROPHYLAXIS
     Route: 048
     Dates: start: 20160322, end: 20160601
  10. CURAN [Concomitant]
     Active Substance: RANITIDINE HYDROCHLORIDE
     Indication: PROPHYLAXIS
     Dosage: 150 MG TWICE A DAY
     Route: 048
  11. MEGACE [Concomitant]
     Active Substance: MEGESTROL ACETATE
     Indication: DECREASED APPETITE
     Route: 048
     Dates: start: 20160427
  12. ALDACTONE [Concomitant]
     Active Substance: SPIRONOLACTONE
     Indication: LOCALISED OEDEMA
     Route: 048
     Dates: start: 20160506
  13. LANSTON [Concomitant]
     Active Substance: LANSOPRAZOLE
     Indication: PROPHYLAXIS
     Route: 048
     Dates: start: 20160510
  14. BACTROBAN [Concomitant]
     Active Substance: MUPIROCIN\MUPIROCIN CALCIUM
     Indication: PROPHYLAXIS
     Route: 003
     Dates: start: 20160416
  15. MEDI4736 [Suspect]
     Active Substance: DURVALUMAB
     Indication: ADENOCARCINOMA
     Route: 042
     Dates: start: 20151228, end: 20151228
  16. MEDI4736 [Suspect]
     Active Substance: DURVALUMAB
     Indication: ADENOCARCINOMA
     Route: 042
     Dates: start: 20160126, end: 20160126
  17. LASIX [Concomitant]
     Active Substance: FUROSEMIDE
     Indication: LOCALISED OEDEMA
     Route: 048
     Dates: start: 20160506
  18. TREMELIMUMAB. [Suspect]
     Active Substance: TREMELIMUMAB
     Indication: ADENOCARCINOMA
     Route: 042
     Dates: start: 20151228, end: 20151228
  19. LIPITOR [Concomitant]
     Active Substance: ATORVASTATIN CALCIUM
     Indication: HYPERCHOLESTEROLAEMIA
     Route: 048
  20. GLIATILIN [Concomitant]
     Active Substance: CHOLINE ALFOSCERATE
     Indication: PROPHYLAXIS
     Dosage: 400MG TWICE A DAY
     Route: 048
  21. MUCOSTA [Concomitant]
     Active Substance: REBAMIPIDE
     Indication: PROPHYLAXIS
     Route: 048
     Dates: start: 20160421
  22. MEDI4736 [Suspect]
     Active Substance: DURVALUMAB
     Indication: ADENOCARCINOMA
     Route: 042
     Dates: start: 20160223, end: 20160223
  23. BENZOTROPIN [Concomitant]
     Indication: PROPHYLAXIS
     Dosage: 1MG TWICE A DAY
     Route: 048
  24. MAGNESIUM OXIDE. [Concomitant]
     Active Substance: MAGNESIUM OXIDE
     Indication: CONSTIPATION
     Route: 048
  25. MEDI4736 [Suspect]
     Active Substance: DURVALUMAB
     Indication: ADENOCARCINOMA
     Dosage: 1.5G ONCE/SINGLE ADMINISTRATION
     Route: 042
     Dates: start: 20160421, end: 20160421
  26. MEGACE [Concomitant]
     Active Substance: MEGESTROL ACETATE
     Indication: DECREASED APPETITE
     Route: 048
     Dates: start: 20160127
  27. CYTOTEC [Concomitant]
     Active Substance: MISOPROSTOL
     Indication: PROPHYLAXIS
     Route: 048
     Dates: start: 20160430
  28. ALBUMINE [Concomitant]
     Indication: HYPERALBUMINAEMIA
     Route: 048
     Dates: start: 20160510, end: 20160510
  29. TREMELIMUMAB. [Suspect]
     Active Substance: TREMELIMUMAB
     Indication: ADENOCARCINOMA
     Route: 042
     Dates: start: 20160322, end: 20160322
  30. TANTUM [Concomitant]
     Active Substance: BENZYDAMINE HYDROCHLORIDE
     Indication: PROPHYLAXIS
     Route: 048
     Dates: start: 20160126
  31. DUVIE [Concomitant]
     Indication: DIABETES MELLITUS
     Route: 048
     Dates: start: 20160322
  32. ULCERLMIN [Concomitant]
     Active Substance: SUCRALFATE
     Indication: PROPHYLAXIS
     Route: 048
     Dates: start: 20160419
  33. DESOWEN [Concomitant]
     Active Substance: DESONIDE
     Indication: PROPHYLAXIS
     Route: 003
     Dates: start: 20160421
  34. SOLONDO [Concomitant]
     Active Substance: PREDNISOLONE
     Indication: DIARRHOEA
     Dosage: 10MG TWICE A DAY
     Route: 048
     Dates: start: 20160506, end: 20160510
  35. ALBUMINE [Concomitant]
     Indication: HYPERALBUMINAEMIA
     Route: 048
     Dates: start: 20160519, end: 20160519

REACTIONS (2)
  - Gastrointestinal haemorrhage [Fatal]
  - Myositis [Not Recovered/Not Resolved]

NARRATIVE: CASE EVENT DATE: 20160519
